FAERS Safety Report 21036082 (Version 2)
Quarter: 2022Q3

REPORT INFORMATION
  Report Type: Spontaneous
  Country: US (occurrence: US)
  Receive Date: 20220701
  Receipt Date: 20220707
  Transmission Date: 20221026
  Serious: Yes (Other)
  Sender: FDA-Public Use
  Company Number: US-SA-2019SA275398

PATIENT
  Age: 67 Year
  Sex: Male

DRUGS (2)
  1. DILTIAZEM [Suspect]
     Active Substance: DILTIAZEM
     Indication: Atrial fibrillation
     Route: 065
  2. NADOLOL [Suspect]
     Active Substance: NADOLOL
     Indication: Varices oesophageal
     Route: 065

REACTIONS (1)
  - BRASH syndrome [Recovered/Resolved]
